FAERS Safety Report 9515558 (Version 1)
Quarter: 2013Q3

REPORT INFORMATION
  Report Type: Report from Study
  Country: CA (occurrence: CA)
  Receive Date: 20130911
  Receipt Date: 20130911
  Transmission Date: 20140515
  Serious: Yes (Death)
  Sender: FDA-Public Use
  Company Number: PHHY2013CA099720

PATIENT
  Age: 80 Year
  Sex: Male

DRUGS (1)
  1. ZOMETA [Suspect]
     Indication: NON-SMALL CELL LUNG CANCER METASTATIC
     Dosage: 3 MG, EVERY 4 WEEKS
     Route: 042
     Dates: start: 20130416

REACTIONS (1)
  - Death [Fatal]
